FAERS Safety Report 6017535-0 (Version None)
Quarter: 2008Q4

REPORT INFORMATION
  Report Type: 
  Country: None (occurrence: None)
  Receive Date: 20081223
  Receipt Date: 20081218
  Transmission Date: 20090506
  Serious: Yes (Death, Other)
  Sender: FDA-Public Use
  Company Number: RS-BAYER-200833104GPV

PATIENT
  Age: 65 Year
  Sex: Male

DRUGS (5)
  1. MABCAMPATH [Suspect]
     Indication: CHRONIC LYMPHOCYTIC LEUKAEMIA
     Dosage: AS USED: 30 MG
     Route: 041
     Dates: start: 20081206, end: 20081206
  2. MABCAMPATH [Suspect]
     Dosage: AS USED: 30 MG
     Route: 041
     Dates: start: 20081208, end: 20081208
  3. MABCAMPATH [Suspect]
     Dosage: AS USED: 10 MG
     Route: 041
     Dates: start: 20081204, end: 20081205
  4. PRONISON [Concomitant]
     Indication: DRUG USE FOR UNKNOWN INDICATION
  5. ENALAPRIL MALEATE [Concomitant]
     Indication: DRUG USE FOR UNKNOWN INDICATION
     Dosage: TOTAL DAILY DOSE: 10 MG

REACTIONS (4)
  - AGGRESSION [None]
  - COMA [None]
  - DEATH [None]
  - DISORIENTATION [None]
